FAERS Safety Report 22518704 (Version 1)
Quarter: 2023Q2

REPORT INFORMATION
  Report Type: Report from Study
  Country: AT (occurrence: AT)
  Receive Date: 20230605
  Receipt Date: 20230605
  Transmission Date: 20230722
  Serious: Yes (Death, Hospitalization, Other)
  Sender: FDA-Public Use
  Company Number: AT-ACTELION-A-CH2018-180584

PATIENT
  Age: 69 Year
  Sex: Female
  Weight: 58 kg

DRUGS (12)
  1. UPTRAVI [Suspect]
     Active Substance: SELEXIPAG
     Indication: Pulmonary arterial hypertension
     Dosage: 800 MCG, QD
     Route: 048
     Dates: start: 20180814, end: 20181227
  2. OPSUMIT [Suspect]
     Active Substance: MACITENTAN
     Indication: Pulmonary arterial hypertension
     Dosage: 10 MG, QD
     Route: 048
     Dates: start: 20171123
  3. ADCIRCA [Concomitant]
     Active Substance: TADALAFIL
     Indication: Pulmonary arterial hypertension
     Dosage: 40 MG, QD
     Dates: start: 20180622
  4. ADCIRCA [Concomitant]
     Active Substance: TADALAFIL
     Indication: Pulmonary arterial hypertension
  5. LASIX [Concomitant]
     Active Substance: FUROSEMIDE
     Indication: Hypertension
     Dosage: UNK
     Route: 042
     Dates: start: 20171121, end: 20180403
  6. LASIX [Concomitant]
     Active Substance: FUROSEMIDE
     Indication: Pulmonary arterial hypertension
     Dosage: UNK
     Route: 042
     Dates: start: 20181228, end: 20181229
  7. LASIX [Concomitant]
     Active Substance: FUROSEMIDE
     Indication: Disease progression
     Dosage: UNK
     Route: 042
     Dates: start: 20190217, end: 20190218
  8. LASIX [Concomitant]
     Active Substance: FUROSEMIDE
     Indication: Oedema peripheral
  9. CLOPIDOGREL [Concomitant]
     Active Substance: CLOPIDOGREL BISULFATE
     Indication: Prophylaxis
     Dosage: UNK
     Route: 048
     Dates: start: 20171123, end: 20181121
  10. ASPIRIN [Concomitant]
     Active Substance: ASPIRIN
     Indication: Prophylaxis
     Dosage: UNK
     Route: 048
     Dates: start: 20171123
  11. CALCIUM CARBONATE [Concomitant]
     Active Substance: CALCIUM CARBONATE
     Indication: Calcium metabolism disorder
     Dosage: UNK
     Route: 048
     Dates: start: 20171123
  12. SPIRONOLACTONE [Concomitant]
     Active Substance: SPIRONOLACTONE
     Indication: Hypertension
     Dosage: UNK
     Route: 048
     Dates: start: 20180622

REACTIONS (14)
  - Pulmonary arterial hypertension [Fatal]
  - Disease progression [Fatal]
  - Condition aggravated [Fatal]
  - Right ventricular failure [Fatal]
  - Cardiac fibrillation [Fatal]
  - Cardiac failure [Recovered/Resolved]
  - N-terminal prohormone brain natriuretic peptide increased [Recovered/Resolved]
  - Pleural effusion [Recovered/Resolved]
  - End stage renal disease [Unknown]
  - Oedema peripheral [Recovered/Resolved]
  - Weight decreased [Unknown]
  - Hypercholesterolaemia [Unknown]
  - Hypokalaemia [Unknown]
  - Hypotension [Unknown]

NARRATIVE: CASE EVENT DATE: 20181016
